FAERS Safety Report 7270528-8 (Version None)
Quarter: 2011Q1

REPORT INFORMATION
  Report Type: 
  Country: None (occurrence: None)
  Receive Date: 20110125
  Receipt Date: 20110125
  Transmission Date: 20110831
  Serious: No
  Sender: FDA-Public Use
  Company Number: None

PATIENT
  Age: 54 Year
  Sex: Female

DRUGS (1)
  1. SOLODYN [Suspect]
     Indication: ROSACEA
     Dosage: 65 MG 1X DAY ORAL
     Route: 048
     Dates: start: 20101214, end: 20101231

REACTIONS (1)
  - CONSTIPATION [None]
